FAERS Safety Report 4721387-6 (Version None)
Quarter: 2005Q3

REPORT INFORMATION
  Report Type: 
  Country: None (occurrence: None)
  Receive Date: 20050721
  Receipt Date: 20040730
  Transmission Date: 20060218
  Serious: No
  Sender: FDA-Public Use
  Company Number: US-BRISTOL-MYERS SQUIBB COMPANY-12657136

PATIENT
  Age: 38 Year
  Sex: Female
  Weight: 63 kg

DRUGS (6)
  1. COUMADIN [Suspect]
     Indication: DEEP VEIN THROMBOSIS
     Route: 048
     Dates: start: 20040601
  2. DILANTIN [Concomitant]
     Dates: start: 20040601
  3. NEURONTIN [Concomitant]
     Dates: start: 20040601
  4. CORGARD [Concomitant]
     Dates: start: 19970101
  5. XANAX [Concomitant]
     Dates: start: 19970101
  6. ZOLOFT [Concomitant]
     Dates: start: 19970101

REACTIONS (1)
  - INTERNATIONAL NORMALISED RATIO DECREASED [None]
